FAERS Safety Report 10024948 (Version 1)
Quarter: 2014Q1

REPORT INFORMATION
  Report Type: Spontaneous
  Country: US (occurrence: US)
  Receive Date: 20140320
  Receipt Date: 20140320
  Transmission Date: 20141002
  Serious: Yes (Hospitalization, Other)
  Sender: FDA-Public Use
  Company Number: PHHY2014US031783

PATIENT
  Age: 48 Year
  Sex: Female

DRUGS (9)
  1. METHYLPREDNISOLONE [Suspect]
     Indication: VISUAL ACUITY REDUCED
     Dosage: 1000 MG, UNK
     Route: 042
  2. METHYLPREDNISOLONE [Suspect]
     Dosage: 2000 MG, UNK
  3. VALSARTAN [Concomitant]
  4. ASPIRIN [Concomitant]
  5. ESOMEPRAZOLE [Concomitant]
  6. INTERFERON BETA-1A [Concomitant]
     Indication: MULTIPLE SCLEROSIS
  7. RISPERIDONE [Concomitant]
  8. HALOPERIDOL [Concomitant]
     Dosage: 5 MG, UNK
  9. HALOPERIDOL [Concomitant]
     Dosage: 1 MG, UNK

REACTIONS (5)
  - Visual acuity reduced [Recovered/Resolved]
  - Condition aggravated [Recovered/Resolved]
  - Diabetes mellitus [Unknown]
  - Acne [Unknown]
  - Cushingoid [Unknown]
